FAERS Safety Report 5404988-1 (Version None)
Quarter: 2007Q3

REPORT INFORMATION
  Report Type: 
  Country: None (occurrence: None)
  Receive Date: 20070801
  Receipt Date: 20030720
  Transmission Date: 20080115
  Serious: Yes (Other)
  Sender: FDA-Public Use
  Company Number: 2007AP000783

PATIENT
  Age: 44 Year
  Sex: Female

DRUGS (11)
  1. CITALOPRAM HYDROBROMIDE [Suspect]
     Indication: DEPRESSION
     Dosage: 20 MG; QD;PO;  40 MG; QD; PO
     Route: 048
  2. MEPERIDINE HCL [Suspect]
     Indication: BREAKTHROUGH PAIN
     Dosage: 230 MG; PARN
  3. HYDROMORPHONE HCL [Concomitant]
  4. PROMETHAZINE [Concomitant]
  5. GATIFLOXACIN [Concomitant]
  6. ZOLPIDEM TARTRATE [Concomitant]
  7. LANSOPRAZOLE [Concomitant]
  8. ENOXAPARIN SODIUM [Concomitant]
  9. FENTANYL [Concomitant]
  10. HYDROCODONE BITARTRATE [Concomitant]
  11. ACETAMINOPHEN [Concomitant]

REACTIONS (10)
  - BLOOD PRESSURE SYSTOLIC INCREASED [None]
  - CONDITION AGGRAVATED [None]
  - DEPRESSION [None]
  - DISORIENTATION [None]
  - HEART RATE INCREASED [None]
  - ILLUSION [None]
  - PARANOIA [None]
  - SEROTONIN SYNDROME [None]
  - WHITE BLOOD CELL COUNT INCREASED [None]
  - WOUND DEBRIDEMENT [None]
